FAERS Safety Report 23720639 (Version 1)
Quarter: 2024Q2

REPORT INFORMATION
  Report Type: Report from Study
  Country: CR (occurrence: CR)
  Receive Date: 20240409
  Receipt Date: 20240409
  Transmission Date: 20240716
  Serious: Yes (Death, Other)
  Sender: FDA-Public Use
  Company Number: CR-SERVIER-S24002631

PATIENT
  Age: 95 Year
  Sex: Female
  Weight: 68 kg

DRUGS (3)
  1. IVABRADINE [Suspect]
     Active Substance: IVABRADINE
     Indication: Hypertension
     Dosage: 1 DOSAGE FORM, QD (HALF TABLET AT THE MORNING AND HALF TABLET AT THE NIGHT)
     Route: 065
     Dates: end: 20231229
  2. IVABRADINE [Suspect]
     Active Substance: IVABRADINE
     Indication: Cardiac disorder
  3. SACUBITRIL\VALSARTAN [Suspect]
     Active Substance: SACUBITRIL\VALSARTAN
     Indication: Cardiac failure
     Dosage: 2 DOSAGE FORM, QD
     Route: 065
     Dates: end: 20231229

REACTIONS (4)
  - Myocardial infarction [Fatal]
  - Dyspnoea [Fatal]
  - Decreased appetite [Unknown]
  - Weight decreased [Unknown]

NARRATIVE: CASE EVENT DATE: 20230801
